FAERS Safety Report 17593581 (Version 1)
Quarter: 2020Q1

REPORT INFORMATION
  Report Type: Report from Study
  Country: US (occurrence: US)
  Receive Date: 20200327
  Receipt Date: 20200327
  Transmission Date: 20200409
  Serious: Yes (Death, Life-Threatening, Other)
  Sender: FDA-Public Use
  Company Number: NVSC2020US083532

PATIENT
  Age: 73 Year
  Sex: Female
  Weight: 89.5 kg

DRUGS (2)
  1. KYMRIAH [Suspect]
     Active Substance: TISAGENLECLEUCEL
     Indication: DIFFUSE LARGE B-CELL LYMPHOMA
     Dosage: 2.2X10^8 VIABLE CELLS
     Route: 042
     Dates: start: 20200310
  2. RASBURICASE [Concomitant]
     Active Substance: RASBURICASE
     Indication: TUMOUR LYSIS SYNDROME
     Route: 065

REACTIONS (13)
  - Encephalopathy [Unknown]
  - Acute respiratory failure [Fatal]
  - Neurotoxicity [Unknown]
  - Hypofibrinogenaemia [Fatal]
  - Anuria [Fatal]
  - Azotaemia [Unknown]
  - Renal failure [Fatal]
  - Atrial fibrillation [Fatal]
  - Cytokine release syndrome [Fatal]
  - International normalised ratio increased [Fatal]
  - Mental status changes [Unknown]
  - Pyrexia [Fatal]
  - Tachycardia [Fatal]

NARRATIVE: CASE EVENT DATE: 20200311
